FAERS Safety Report 9242320 (Version 5)
Quarter: 2013Q3

REPORT INFORMATION
  Report Type: Spontaneous
  Country: JP (occurrence: JP)
  Receive Date: 20130419
  Receipt Date: 20130813
  Transmission Date: 20140515
  Serious: Yes (Death, Other)
  Sender: FDA-Public Use
  Company Number: JP-CELGENEUS-087-21880-13042949

PATIENT
  Age: 78 Year
  Sex: Male

DRUGS (16)
  1. REVLIMID [Suspect]
     Indication: PLASMA CELL MYELOMA
     Dosage: 5 MILLIGRAM
     Route: 048
     Dates: start: 20120412, end: 20130205
  2. MELPHALAN [Suspect]
     Indication: PLASMA CELL MYELOMA
     Route: 065
     Dates: start: 20080628, end: 20110130
  3. RCC [Concomitant]
     Indication: PRODUCT USED FOR UNKNOWN INDICATION
     Dosage: 2 UNITS
     Route: 041
     Dates: start: 20120403, end: 20120808
  4. RCC [Concomitant]
     Dosage: 2 UNITS
     Route: 041
     Dates: start: 20120905, end: 20120926
  5. RCC [Concomitant]
     Dosage: 2 UNITS
     Route: 041
     Dates: start: 20121030, end: 20130205
  6. PC [Concomitant]
     Indication: PRODUCT USED FOR UNKNOWN INDICATION
     Dosage: 10 UNITS
     Route: 041
     Dates: start: 20120905, end: 20120926
  7. PC [Concomitant]
     Dosage: 10 UNITS
     Route: 041
     Dates: start: 20121003, end: 20121010
  8. PC [Concomitant]
     Dosage: 10 UNITS
     Route: 041
     Dates: start: 20121030, end: 20130205
  9. DECADRON [Concomitant]
     Indication: PLASMA CELL MYELOMA
     Dosage: 20 MILLIGRAM
     Route: 048
     Dates: start: 20120412, end: 20130205
  10. BAKTAR [Concomitant]
     Indication: PROPHYLAXIS
     Route: 048
     Dates: start: 20120412
  11. TAKEPRON [Concomitant]
     Indication: PROPHYLAXIS
     Dosage: 30 MILLIGRAM
     Route: 048
     Dates: start: 20120412
  12. ITRIZOLE [Concomitant]
     Indication: PROPHYLAXIS
     Dosage: 200 MILLIGRAM
     Route: 048
     Dates: start: 20120412
  13. FAMVIR [Concomitant]
     Indication: PROPHYLAXIS
     Dosage: 250 MILLIGRAM
     Route: 048
     Dates: start: 20120412
  14. ZYLORIC [Concomitant]
     Indication: HYPERURICAEMIA
     Dosage: 100 MILLIGRAM
     Route: 048
     Dates: start: 20120412
  15. ALOSENN [Concomitant]
     Indication: CONSTIPATION
     Dosage: 4 GRAM
     Route: 048
     Dates: start: 20120412
  16. LASIX [Concomitant]
     Indication: OEDEMA
     Dosage: 120 MILLIGRAM
     Route: 048
     Dates: start: 20120412

REACTIONS (2)
  - Lung adenocarcinoma [Fatal]
  - Eosinophil count increased [Recovered/Resolved]
